FAERS Safety Report 10504258 (Version 1)
Quarter: 2014Q4

REPORT INFORMATION
  Report Type: Spontaneous
  Country: US (occurrence: None)
  Receive Date: 20141006
  Receipt Date: 20141006
  Transmission Date: 20150528
  Serious: Yes (Other)
  Sender: FDA-Public Use
  Company Number: 2014-US-007252

PATIENT
  Age: 36 Year
  Sex: Female
  Weight: 69.4 kg

DRUGS (10)
  1. XYREM [Suspect]
     Active Substance: SODIUM OXYBATE
     Indication: NARCOLEPSY
     Route: 048
     Dates: start: 201302, end: 2013
  2. ADDERALL (AMFETAMINE ASPARTATE, AMFETAMINE SULFATE, DEXAMFETAMINE SACCHARATEM, DEXAMFETAMINE SULFATE) [Concomitant]
  3. PRILOSEC (OMEPRAZOLE) [Concomitant]
     Active Substance: OMEPRAZOLE MAGNESIUM
  4. XYREM [Suspect]
     Active Substance: SODIUM OXYBATE
     Indication: CATAPLEXY
     Route: 048
     Dates: start: 201302, end: 2013
  5. ROBAXIN (METHOCARBAMOL) [Concomitant]
  6. PERCOCET (OXYCODONE HYDROCHLORIDE, PARACETAMOL) [Concomitant]
  7. PRAZOSIN HYDROCHLORIDE (PRAZOSIN HYDROCHLORIDE) [Concomitant]
  8. MORPHINE SULFATE (MORPHINE SULFATE) [Concomitant]
  9. WELLBUTRIN [Concomitant]
     Active Substance: BUPROPION HYDROCHLORIDE
  10. VALIUM [Concomitant]
     Active Substance: DIAZEPAM

REACTIONS (6)
  - Foot deformity [None]
  - Hyperhidrosis [None]
  - Fracture nonunion [None]
  - Hypertension [None]
  - Foot fracture [None]
  - Tremor [None]

NARRATIVE: CASE EVENT DATE: 201402
